FAERS Safety Report 6545974-8 (Version None)
Quarter: 2010Q1

REPORT INFORMATION
  Report Type: 
  Country: None (occurrence: None)
  Receive Date: 20100121
  Receipt Date: 20100121
  Transmission Date: 20100710
  Serious: No
  Sender: FDA-Public Use
  Company Number: None

PATIENT
  Age: 32 Year
  Sex: Female
  Weight: 58.9676 kg

DRUGS (1)
  1. CHILDREN'S TYLENOL SUSPENSION [Suspect]
     Indication: HEADACHE
     Dosage: 5 TABLETS 2 TIMES PO
     Route: 048
     Dates: start: 20091227, end: 20091227

REACTIONS (2)
  - GASTRIC DISORDER [None]
  - PRODUCT QUALITY ISSUE [None]
